FAERS Safety Report 9773154 (Version 1)
Quarter: 2013Q4

REPORT INFORMATION
  Report Type: Spontaneous
  Country: NL (occurrence: NL)
  Receive Date: 20131219
  Receipt Date: 20131219
  Transmission Date: 20140711
  Serious: Yes (Hospitalization)
  Sender: FDA-Public Use
  Company Number: NL-TEVA-450925ISR

PATIENT
  Age: 70 Year
  Sex: Male
  Weight: 81 kg

DRUGS (5)
  1. CLOPIDOGREL [Suspect]
     Indication: PROPHYLAXIS
     Dosage: 75 MILLIGRAM DAILY;
     Dates: start: 20131030
  2. CARBASALATE CALCIUM POWDER 100 MG [Concomitant]
     Dosage: POWDER
     Dates: start: 1993
  3. TOLBUTAMIDE TAVLET 500 MG [Concomitant]
     Dosage: 1500 MILLIGRAM DAILY;
     Dates: start: 1993
  4. IRBESARTAN TABLET 300 MG [Concomitant]
     Dosage: 300 MILLIGRAM DAILY;
     Dates: start: 1993
  5. METFORMINE TABET 850 MG [Concomitant]
     Dosage: 2550 MILLIGRAM DAILY;
     Dates: start: 1995

REACTIONS (4)
  - Dizziness [Recovering/Resolving]
  - Blood pressure fluctuation [Recovering/Resolving]
  - Haematuria [Recovering/Resolving]
  - Drug interaction [None]
